FAERS Safety Report 19905989 (Version 8)
Quarter: 2021Q4

REPORT INFORMATION
  Report Type: Report from Study
  Country: US (occurrence: US)
  Receive Date: 20210930
  Receipt Date: 20211115
  Transmission Date: 20220303
  Serious: No
  Sender: FDA-Public Use
  Company Number: NVSC2021US221760

PATIENT
  Sex: Female

DRUGS (2)
  1. TAFINLAR [Suspect]
     Active Substance: DABRAFENIB MESYLATE
     Indication: Lung neoplasm malignant
     Dosage: 150 MG, BID
     Route: 048
     Dates: start: 20210918
  2. MEKINIST [Suspect]
     Active Substance: TRAMETINIB DIMETHYL SULFOXIDE
     Indication: Product used for unknown indication
     Dosage: 2 MG, QD
     Route: 048
     Dates: start: 20210918

REACTIONS (8)
  - Dry mouth [Unknown]
  - Hypoproteinaemia [Unknown]
  - Protein total decreased [Unknown]
  - Chills [Unknown]
  - Constipation [Unknown]
  - Fatigue [Unknown]
  - Rash [Unknown]
  - Peripheral swelling [Unknown]
